FAERS Safety Report 26180614 (Version 1)
Quarter: 2025Q4

REPORT INFORMATION
  Report Type: Report from Study
  Country: US (occurrence: None)
  Receive Date: 20251219
  Receipt Date: 20251219
  Transmission Date: 20260118
  Serious: Yes (Other)
  Sender: UCB
  Company Number: US-UCBSA-2025080159

PATIENT
  Age: 32 Year

DRUGS (2)
  1. CERTOLIZUMAB PEGOL [Suspect]
     Active Substance: CERTOLIZUMAB PEGOL
     Indication: Psoriasis
     Dosage: 400 MILLIGRAM, EV 2 WEEKS(QOW) AND AND THEN 400MG EVERY 4 WEEKS OR 200MG EVERY 2 WEEKS (HCP MAY CHANGE TO 400MG EVERY 2 WEEKS IN FUTURE
  2. CERTOLIZUMAB PEGOL [Suspect]
     Active Substance: CERTOLIZUMAB PEGOL
     Indication: Psoriatic arthropathy

REACTIONS (10)
  - Pneumonia [Not Recovered/Not Resolved]
  - Intracranial aneurysm [Unknown]
  - Brain stent insertion [Unknown]
  - Vision blurred [Not Recovered/Not Resolved]
  - Delayed dark adaptation [Not Recovered/Not Resolved]
  - Delayed light adaptation [Not Recovered/Not Resolved]
  - Balance disorder [Not Recovered/Not Resolved]
  - Coordination abnormal [Not Recovered/Not Resolved]
  - Memory impairment [Not Recovered/Not Resolved]
  - Pain [Not Recovered/Not Resolved]
